FAERS Safety Report 19152438 (Version 1)
Quarter: 2021Q2

REPORT INFORMATION
  Report Type: Report from Study
  Country: IT (occurrence: IT)
  Receive Date: 20210419
  Receipt Date: 20210419
  Transmission Date: 20210717
  Serious: Yes (Death, Other)
  Sender: FDA-Public Use
  Company Number: IT-PFIZER INC-2021383597

PATIENT
  Age: 51 Year
  Sex: Male

DRUGS (6)
  1. ADRIBLASTINA [Suspect]
     Active Substance: DOXORUBICIN HYDROCHLORIDE
     Dosage: 10 MG/M2 (1 MG/MIN), ENCAPSULATED INTO AUTOLOGOUS ERYTHROCYTES, ON A BIWEEKLY SCHEDULE
     Route: 025
  2. GLUTARALDEHYDE [Concomitant]
     Active Substance: GLUTARAL
     Dosage: UNK
     Route: 025
  3. ADRIBLASTINA [Suspect]
     Active Substance: DOXORUBICIN HYDROCHLORIDE
     Indication: COLORECTAL CANCER METASTATIC
     Dosage: 10 MG/M2, INFUSION RATE WAS 1 MG/MIN),WAS REPEATED 3 TIMES AT WEEKLY INTERVALS
     Route: 025
  4. FOTEMUSTINE [Suspect]
     Active Substance: FOTEMUSTINE
     Indication: COLORECTAL CANCER METASTATIC
     Dosage: UNK
  5. MITOMYCIN. [Suspect]
     Active Substance: MITOMYCIN
     Indication: COLORECTAL CANCER METASTATIC
     Dosage: UNK, CYCLIC
     Route: 025
  6. ERYTHROCYTES [Concomitant]
     Active Substance: HUMAN RED BLOOD CELL
     Dosage: UNK
     Route: 025

REACTIONS (3)
  - Pancytopenia [Unknown]
  - Myelosuppression [Unknown]
  - Septic shock [Fatal]
